FAERS Safety Report 6739099-6 (Version None)
Quarter: 2010Q2

REPORT INFORMATION
  Report Type: 
  Country: None (occurrence: None)
  Receive Date: 20100525
  Receipt Date: 20100517
  Transmission Date: 20101027
  Serious: Yes (Other)
  Sender: FDA-Public Use
  Company Number: US-BIOGENIDEC-2010BI016153

PATIENT
  Age: 51 Year
  Sex: Female
  Weight: 63 kg

DRUGS (2)
  1. AVONEX [Suspect]
     Indication: MULTIPLE SCLEROSIS
     Route: 030
     Dates: start: 20060101, end: 20070101
  2. AVONEX [Suspect]
     Route: 030
     Dates: start: 20100405

REACTIONS (10)
  - CHILLS [None]
  - EXCORIATION [None]
  - FALL [None]
  - FOOT FRACTURE [None]
  - HEADACHE [None]
  - MOBILITY DECREASED [None]
  - OEDEMA PERIPHERAL [None]
  - PAIN IN EXTREMITY [None]
  - PYREXIA [None]
  - SYNCOPE [None]
